FAERS Safety Report 18728156 (Version 1)
Quarter: 2021Q1

REPORT INFORMATION
  Report Type: Spontaneous
  Country: DE (occurrence: DE)
  Receive Date: 20210111
  Receipt Date: 20210111
  Transmission Date: 20210419
  Serious: Yes (Other)
  Sender: FDA-Public Use
  Company Number: DE-JNJFOC-20210104692

PATIENT
  Age: 70 Year
  Sex: Female
  Weight: 70 kg

DRUGS (10)
  1. DEHYDRO SANOL TRI [BEMETIZIDE;HESPERIDIN COMPLEX;THIAMINE MONONITRATE; [Concomitant]
     Indication: CARDIAC DISORDER
     Route: 065
     Dates: start: 200011
  2. DEHYDRO SANOL TRI [BEMETIZIDE;HESPERIDIN COMPLEX;THIAMINE MONONITRATE; [Concomitant]
     Indication: URINARY RETENTION
  3. ASPRIN [Concomitant]
     Active Substance: ASPIRIN
     Indication: DIZZINESS
  4. ASPRIN [Concomitant]
     Active Substance: ASPIRIN
     Indication: CARDIAC DISORDER
  5. IMODIUM [Suspect]
     Active Substance: LOPERAMIDE HYDROCHLORIDE
     Indication: GASTROINTESTINAL DISORDER
     Route: 065
  6. NOVORAPID [Concomitant]
     Active Substance: INSULIN ASPART
     Indication: MONOGENIC DIABETES
     Route: 065
     Dates: start: 202011
  7. L?THYROXIN [LEVOTHYROXINE SODIUM] [Suspect]
     Active Substance: LEVOTHYROXINE SODIUM
     Indication: HYPOTHYROIDISM
     Route: 065
     Dates: start: 200011
  8. INSULIN [Concomitant]
     Active Substance: INSULIN NOS
     Indication: PRODUCT USED FOR UNKNOWN INDICATION
     Route: 065
     Dates: start: 200011
  9. ASPRIN [Concomitant]
     Active Substance: ASPIRIN
     Indication: STENT PLACEMENT
  10. ASPRIN [Concomitant]
     Active Substance: ASPIRIN
     Indication: HEADACHE
     Route: 065
     Dates: start: 202011

REACTIONS (5)
  - Tachycardia [Not Recovered/Not Resolved]
  - Palpitations [Recovering/Resolving]
  - Spinal operation [Recovered/Resolved]
  - Headache [Recovering/Resolving]
  - Dizziness [Recovering/Resolving]

NARRATIVE: CASE EVENT DATE: 2019
